FAERS Safety Report 5423468-0 (Version None)
Quarter: 2007Q3

REPORT INFORMATION
  Report Type: 
  Country: None (occurrence: None)
  Receive Date: 20070823
  Receipt Date: 20070816
  Transmission Date: 20080115
  Serious: Yes (Hospitalization)
  Sender: FDA-Public Use
  Company Number: JP-SP-2007-00499

PATIENT
  Age: 67 Year
  Sex: Male

DRUGS (2)
  1. IMMUCYST [Suspect]
     Indication: CARCINOMA IN SITU OF BLADDER
     Route: 043
     Dates: start: 20060130, end: 20060320
  2. IMMUCYST [Suspect]
     Route: 043
     Dates: start: 20060130, end: 20060320

REACTIONS (3)
  - CONTRACTED BLADDER [None]
  - DYSURIA [None]
  - POLLAKIURIA [None]
